FAERS Safety Report 10947187 (Version 1)
Quarter: 2015Q1

REPORT INFORMATION
  Report Type: Spontaneous
  Country: US (occurrence: US)
  Receive Date: 20150323
  Receipt Date: 20150323
  Transmission Date: 20150721
  Serious: Yes (Hospitalization, Other)
  Sender: FDA-Public Use
  Company Number: US-TEVA-548761USA

PATIENT
  Age: 67 Year
  Sex: Male
  Weight: 85 kg

DRUGS (3)
  1. HYDROMORPHONE [Concomitant]
     Active Substance: HYDROMORPHONE
     Indication: ANALGESIC THERAPY
     Dosage: 0.4MG
     Route: 065
  2. PROPOFOL. [Suspect]
     Active Substance: PROPOFOL
     Dosage: 20MG
     Route: 065
  3. MIDAZOLAM [Concomitant]
     Active Substance: MIDAZOLAM\MIDAZOLAM HYDROCHLORIDE
     Indication: ANXIOLYTIC THERAPY
     Dosage: 3MG
     Route: 065

REACTIONS (2)
  - Vocal cord disorder [Recovered/Resolved]
  - Dystonia [Recovered/Resolved]
